FAERS Safety Report 17336009 (Version 1)
Quarter: 2020Q1

REPORT INFORMATION
  Report Type: Spontaneous
  Country: GB (occurrence: GB)
  Receive Date: 20200128
  Receipt Date: 20200128
  Transmission Date: 20200409
  Serious: Yes (Hospitalization, Other)
  Sender: FDA-Public Use
  Company Number: GB-MYLANLABS-2020M1009077

PATIENT

DRUGS (4)
  1. PARACETAMOL [Suspect]
     Active Substance: ACETAMINOPHEN
     Indication: BACK PAIN
     Dosage: 7.5 G, QD
     Route: 065
  2. GAVISCON                           /01279101/ [Suspect]
     Active Substance: ALUMINUM HYDROXIDE \CALCIUM CARBONATE\SODIUM ALGINATE\SODIUM BICARBONATE
     Indication: PRODUCT USED FOR UNKNOWN INDICATION
     Dosage: 600 MILLILITER, QW 600 ML PER WEEK FOR 8 MONTHS
     Route: 065
  3. IBUPROFEN. [Suspect]
     Active Substance: IBUPROFEN
     Indication: ANALGESIC THERAPY
     Dosage: 6 GRAM, QD
     Route: 065
  4. CALCIUM CARBONATE W/MAGNESIUM CARBONATE/MAGNESIUM TRISILICATE [Suspect]
     Active Substance: CALCIUM CARBONATE\MAGNESIUM CARBONATE\MAGNESIUM TRISILICATE
     Indication: ANTACID THERAPY
     Dosage: 72 DOSAGE FORM, QD
     Route: 065

REACTIONS (5)
  - Gastric ulcer [Unknown]
  - Liver function test abnormal [Recovering/Resolving]
  - Overdose [Recovered/Resolved]
  - Coagulopathy [Recovering/Resolving]
  - Self-medication [Recovered/Resolved]
